FAERS Safety Report 4517110-0 (Version None)
Quarter: 2004Q4

REPORT INFORMATION
  Report Type: 
  Country: None (occurrence: None)
  Receive Date: 20041130
  Receipt Date: 20041111
  Transmission Date: 20050328
  Serious: Yes (Hospitalization, Disabling)
  Sender: FDA-Public Use
  Company Number: JP_041105154

PATIENT
  Age: 73 Year
  Sex: Male
  Weight: 43 kg

DRUGS (2)
  1. HUMULIN R [Suspect]
     Indication: DIABETES MELLITUS
     Dosage: 12 U DAY
     Dates: start: 20040111, end: 20040101
  2. NOVORAPID (INSULIN ASPART) [Concomitant]

REACTIONS (4)
  - CEREBRAL ATROPHY [None]
  - CEREBRAL DISORDER [None]
  - CEREBRAL ISCHAEMIA [None]
  - HYPOGLYCAEMIC COMA [None]
